FAERS Safety Report 6809254-5 (Version None)
Quarter: 2010Q2

REPORT INFORMATION
  Report Type: 
  Country: None (occurrence: None)
  Receive Date: 20100630
  Receipt Date: 20100618
  Transmission Date: 20101027
  Serious: Yes (Other)
  Sender: FDA-Public Use
  Company Number: US-BAYER-201026005NA

PATIENT
  Sex: Female

DRUGS (5)
  1. MIRENA [Suspect]
     Indication: DRUG USE FOR UNKNOWN INDICATION
     Dosage: FREQUENCY: CONTINUOUS
     Route: 015
     Dates: start: 20100428, end: 20100505
  2. TEGRETOL [Concomitant]
     Indication: BIPOLAR DISORDER
     Route: 048
  3. FLAGYL [Concomitant]
     Indication: VAGINAL INFECTION
     Route: 065
  4. MORPHINE [Concomitant]
     Indication: PAIN
  5. ANTIBIOTICS [Concomitant]
     Indication: PAIN
     Route: 042

REACTIONS (3)
  - DEVICE BREAKAGE [None]
  - DISCOMFORT [None]
  - PAIN [None]
